FAERS Safety Report 13983131 (Version 1)
Quarter: 2017Q3

REPORT INFORMATION
  Report Type: Spontaneous
  Country: US (occurrence: US)
  Receive Date: 20170918
  Receipt Date: 20170918
  Transmission Date: 20171128
  Serious: Yes (Other)
  Sender: FDA-Public Use
  Company Number: None

PATIENT
  Age: 61 Year
  Sex: Female
  Weight: 63 kg

DRUGS (6)
  1. ACTAVIS HYDROCODONE/ACETAMINOPHEN 2172 [Suspect]
     Active Substance: ACETAMINOPHEN\HYDROCODONE BITARTRATE
     Indication: METASTASES TO BONE
     Dosage: ?          QUANTITY:1 TABLET(S);?
     Route: 048
     Dates: start: 20170916, end: 20170917
  2. ACTAVIS HYDROCODONE/ACETAMINOPHEN 2172 [Suspect]
     Active Substance: ACETAMINOPHEN\HYDROCODONE BITARTRATE
     Indication: BREAST CANCER METASTATIC
     Dosage: ?          QUANTITY:1 TABLET(S);?
     Route: 048
     Dates: start: 20170916, end: 20170917
  3. AFINITOR [Concomitant]
     Active Substance: EVEROLIMUS
  4. MULTI-VITAMINS [Concomitant]
  5. ACTAVIS HYDROCODONE/ACETAMINOPHEN 2172 [Suspect]
     Active Substance: ACETAMINOPHEN\HYDROCODONE BITARTRATE
     Indication: CANCER PAIN
     Dosage: ?          QUANTITY:1 TABLET(S);?
     Route: 048
     Dates: start: 20170916, end: 20170917
  6. EXEMESTANE. [Concomitant]
     Active Substance: EXEMESTANE

REACTIONS (3)
  - Vomiting [None]
  - Oropharyngeal pain [None]
  - Product substitution issue [None]

NARRATIVE: CASE EVENT DATE: 20170916
